FAERS Safety Report 7400608-5 (Version None)
Quarter: 2011Q2

REPORT INFORMATION
  Report Type: 
  Country: None (occurrence: None)
  Receive Date: 20110407
  Receipt Date: 20110405
  Transmission Date: 20111010
  Serious: Yes (Hospitalization)
  Sender: FDA-Public Use
  Company Number: FR-JNJFOC-20110310326

PATIENT
  Age: 73 Year
  Sex: Male

DRUGS (7)
  1. DECAPEPTYL [Concomitant]
     Dosage: QUARTERLY
     Route: 030
  2. BISOPROLOL [Suspect]
     Indication: PRODUCT USED FOR UNKNOWN INDICATION
     Route: 048
  3. KARDEGIC [Concomitant]
  4. ACTIFED [Suspect]
     Indication: NASOPHARYNGITIS
     Dosage: TWO TO THREE TABLETS
     Route: 048
  5. ACTIFED [Suspect]
     Indication: NASOPHARYNGITIS
     Dosage: TWO TO THREE TABLETS
     Route: 048
  6. CLOPIDOGREL [Concomitant]
  7. ATORVASTATIN CALCIUM [Concomitant]

REACTIONS (1)
  - ANGINA PECTORIS [None]
